FAERS Safety Report 15125141 (Version 3)
Quarter: 2019Q1

REPORT INFORMATION
  Report Type: Spontaneous
  Country: FR (occurrence: FR)
  Receive Date: 20180710
  Receipt Date: 20190115
  Transmission Date: 20190417
  Serious: Yes (Hospitalization, Other)
  Sender: FDA-Public Use
  Company Number: PHHY2018FR038199

PATIENT
  Age: 62 Year
  Sex: Female
  Weight: 63 kg

DRUGS (6)
  1. CANDESARTAN. [Concomitant]
     Active Substance: CANDESARTAN
     Indication: PRODUCT USED FOR UNKNOWN INDICATION
     Dosage: UNK
     Route: 065
  2. COSENTYX [Suspect]
     Active Substance: SECUKINUMAB
     Indication: ANKYLOSING SPONDYLITIS
     Dosage: 1 DF, QW
     Route: 058
     Dates: start: 201710
  3. COSENTYX [Suspect]
     Active Substance: SECUKINUMAB
     Dosage: 1 DF, QMO
     Route: 058
     Dates: end: 20180515
  4. SEROPLEX [Concomitant]
     Active Substance: ESCITALOPRAM OXALATE
     Indication: PRODUCT USED FOR UNKNOWN INDICATION
     Dosage: UNK
     Route: 065
  5. SYMBICORT [Concomitant]
     Active Substance: BUDESONIDE\FORMOTEROL FUMARATE DIHYDRATE
     Indication: PRODUCT USED FOR UNKNOWN INDICATION
     Dosage: UNK
     Route: 065
  6. VENTOLINE [Concomitant]
     Active Substance: ALBUTEROL
     Indication: PRODUCT USED FOR UNKNOWN INDICATION
     Dosage: UNK
     Route: 065

REACTIONS (15)
  - Peripheral swelling [Unknown]
  - Vomiting [Recovering/Resolving]
  - Abdominal pain [Recovering/Resolving]
  - Diarrhoea [Recovering/Resolving]
  - Nausea [Unknown]
  - Colitis [Recovered/Resolved with Sequelae]
  - C-reactive protein increased [Unknown]
  - Uveitis [Unknown]
  - Gait disturbance [Unknown]
  - Gastrointestinal inflammation [Unknown]
  - Fatigue [Unknown]
  - Weight decreased [Unknown]
  - Lung disorder [Unknown]
  - Abdominal discomfort [Unknown]
  - Decreased appetite [Unknown]

NARRATIVE: CASE EVENT DATE: 20180505
